APPROVED DRUG PRODUCT: MEXILETINE HYDROCHLORIDE
Active Ingredient: MEXILETINE HYDROCHLORIDE
Strength: 250MG
Dosage Form/Route: CAPSULE;ORAL
Application: A074865 | Product #003
Applicant: WATSON LABORATORIES INC
Approved: Apr 13, 1998 | RLD: No | RS: No | Type: DISCN